FAERS Safety Report 25236590 (Version 1)
Quarter: 2025Q2

REPORT INFORMATION
  Report Type: Report from Study
  Country: US (occurrence: US)
  Receive Date: 20250424
  Receipt Date: 20250424
  Transmission Date: 20250717
  Serious: Yes (Hospitalization, Other)
  Sender: ALEXION PHARMACEUTICALS
  Company Number: US-AstraZeneca-CH-00852574A

PATIENT

DRUGS (2)
  1. ULTOMIRIS [Suspect]
     Active Substance: RAVULIZUMAB-CWVZ
     Indication: Myasthenia gravis
     Route: 065
  2. PREDNISONE [Concomitant]
     Active Substance: PREDNISONE
     Route: 065

REACTIONS (13)
  - Sepsis [Unknown]
  - Cataract [Unknown]
  - Choking [Recovering/Resolving]
  - Skin cancer [Unknown]
  - Therapeutic response decreased [Unknown]
  - Wound [Unknown]
  - Dizziness [Unknown]
  - Diplopia [Unknown]
  - Oedema [Unknown]
  - Inguinal hernia [Unknown]
  - Dysphagia [Unknown]
  - Renal disorder [Unknown]
  - Eye disorder [Unknown]
